FAERS Safety Report 19587977 (Version 1)
Quarter: 2021Q3

REPORT INFORMATION
  Report Type: Spontaneous
  Country: CN (occurrence: CN)
  Receive Date: 20210721
  Receipt Date: 20210721
  Transmission Date: 20211014
  Serious: Yes (Other)
  Sender: FDA-Public Use
  Company Number: CN-BAXTER-2021BAX020923

PATIENT
  Age: 79 Year
  Sex: Female
  Weight: 52 kg

DRUGS (11)
  1. 0.9% SODIUM CHLORIDE INJECTION [Suspect]
     Active Substance: SODIUM CHLORIDE
     Indication: ADVERSE EVENT
     Route: 041
     Dates: start: 20210624
  2. 5% GLUCOSE  INJECTION [Suspect]
     Active Substance: DEXTROSE
     Indication: MEDICATION DILUTION
     Dosage: 5% GS 250 ML + DIAZEPAM INJECTION 20 MG IV ST
     Route: 042
     Dates: start: 20210624, end: 20210624
  3. DIAZEPAM. [Suspect]
     Active Substance: DIAZEPAM
     Indication: ADVERSE EVENT
     Route: 042
     Dates: start: 20210624, end: 20210624
  4. CEFTRIAXONE SODIUM FOR INJECTION [Suspect]
     Active Substance: CEFTRIAXONE SODIUM
     Indication: GASTROINTESTINAL INFECTION
     Dosage: CEFTRIAXONE SODIUM FOR INJECTION 3.0G + NS 100ML IVGTT ST
     Route: 041
     Dates: start: 20210624, end: 20210624
  5. MEDIUM AND LONG CHAIN FAT EMULSION INJECTION (C8?24) [Suspect]
     Active Substance: GLYCERIN\MEDIUM-CHAIN TRIGLYCERIDES\PHOSPHOLIPID\SOYBEAN OIL
     Indication: NUTRITIONAL SUPPLEMENTATION
     Route: 041
     Dates: start: 20210624, end: 20210624
  6. CEFTRIAXONE SODIUM FOR INJECTION [Suspect]
     Active Substance: CEFTRIAXONE SODIUM
     Dosage: DOSE RE?INTRODUCED
     Route: 041
     Dates: start: 20210625, end: 20210628
  7. 0.9% SODIUM CHLORIDE INJECTION [Suspect]
     Active Substance: SODIUM CHLORIDE
     Indication: MEDICATION DILUTION
     Dosage: CEFTRIAXONE SODIUM FOR INJECTION 3.0G + NS 100ML IVGTT ST
     Route: 041
     Dates: start: 20210624, end: 20210624
  8. DEXAMETHASONE SODIUM PHOSPHATE INJECTION [Suspect]
     Active Substance: DEXAMETHASONE SODIUM PHOSPHATE
     Indication: ADVERSE EVENT
     Route: 065
     Dates: start: 20210624
  9. GLUCOSE AND SODIUM CHLORIDE [Suspect]
     Active Substance: DEXTROSE\SODIUM CHLORIDE
     Indication: NUTRITIONAL SUPPLEMENTATION
     Dosage: INFUSED 500 ML OUT OF 150 ML REMAINING, ST.
     Route: 041
     Dates: start: 20210624, end: 20210624
  10. ORNIDAZOLE AND SODIUM CHLORIDE INJECTION [Suspect]
     Active Substance: ORNIDAZOLE
     Indication: GASTROINTESTINAL INFECTION
     Dosage: ST.
     Route: 041
     Dates: start: 20210624, end: 20210624
  11. ORNIDAZOLE AND SODIUM CHLORIDE INJECTION [Suspect]
     Active Substance: ORNIDAZOLE
     Dosage: DOSE RE?INTRODUCED
     Route: 041
     Dates: start: 20210625, end: 20210628

REACTIONS (6)
  - Tremor [Recovered/Resolved]
  - Abdominal discomfort [Recovered/Resolved]
  - Muscle spasms [Recovered/Resolved]
  - Cyanosis [Recovered/Resolved]
  - Vomiting [Recovered/Resolved]
  - Body temperature increased [Recovered/Resolved]

NARRATIVE: CASE EVENT DATE: 20210624
